FAERS Safety Report 19895401 (Version 2)
Quarter: 2021Q3

REPORT INFORMATION
  Report Type: Other
  Country: CA (occurrence: CA)
  Receive Date: 20210929
  Receipt Date: 20210930
  Transmission Date: 20211014
  Serious: No
  Sender: FDA-Public Use
  Company Number: CA-ROCHE-2924018

PATIENT
  Age: 46 Year
  Sex: Female

DRUGS (4)
  1. NEOCITRAN (CANADA) [Concomitant]
  2. OCREVUS [Suspect]
     Active Substance: OCRELIZUMAB
     Indication: RELAPSING-REMITTING MULTIPLE SCLEROSIS
     Dosage: 300 MG AT DAY 0 AND 14, THEN 600 MG EVERY 6 MONTH
     Route: 042
     Dates: start: 20210525
  3. ESTROGEN [Concomitant]
     Active Substance: ESTROGENS
  4. TYLENOL COLD [Concomitant]

REACTIONS (6)
  - Pain [Recovered/Resolved]
  - Cough [Not Recovered/Not Resolved]
  - Hot flush [Recovered/Resolved]
  - Pyrexia [Recovered/Resolved]
  - Fatigue [Not Recovered/Not Resolved]
  - Anosmia [Recovered/Resolved]

NARRATIVE: CASE EVENT DATE: 20210910
